FAERS Safety Report 5372334-8 (Version None)
Quarter: 2007Q2

REPORT INFORMATION
  Report Type: 
  Country: None (occurrence: None)
  Receive Date: 20070620
  Receipt Date: 20070328
  Transmission Date: 20071010
  Serious: No
  Sender: FDA-Public Use
  Company Number: 2007RL000144

PATIENT
  Age: 53 Year
  Sex: Male

DRUGS (4)
  1. OMACOR [Suspect]
     Indication: BLOOD TRIGLYCERIDES INCREASED
     Dosage: 2 GM;BID;PO
     Route: 048
     Dates: start: 20070323
  2. DIOVAN [Concomitant]
  3. FOSINOPRIL SODIUM [Concomitant]
  4. AZITHROMYCIN [Concomitant]

REACTIONS (2)
  - BREATH ODOUR [None]
  - DIARRHOEA [None]
